FAERS Safety Report 15477606 (Version 1)
Quarter: 2018Q4

REPORT INFORMATION
  Report Type: Spontaneous
  Country: US (occurrence: US)
  Receive Date: 20181009
  Receipt Date: 20181009
  Transmission Date: 20190205
  Serious: No
  Sender: FDA-Public Use
  Company Number: US-ELI_LILLY_AND_COMPANY-US201810000915

PATIENT
  Sex: Female

DRUGS (1)
  1. BASAGLAR [Suspect]
     Active Substance: INSULIN GLARGINE
     Indication: PRODUCT USED FOR UNKNOWN INDICATION
     Dosage: 64 U, UNKNOWN
     Route: 065

REACTIONS (3)
  - Injection site bruising [Recovering/Resolving]
  - Injection site pain [Recovering/Resolving]
  - Accidental underdose [Recovered/Resolved]
